FAERS Safety Report 10638538 (Version 3)
Quarter: 2015Q1

REPORT INFORMATION
  Report Type: Spontaneous
  Country: DE (occurrence: DE)
  Receive Date: 20141208
  Receipt Date: 20150226
  Transmission Date: 20150720
  Serious: Yes (Hospitalization)
  Sender: FDA-Public Use
  Company Number: PHHY2014DE155628

PATIENT
  Age: 87 Year
  Sex: Male
  Weight: 73 kg

DRUGS (1)
  1. EXJADE [Suspect]
     Active Substance: DEFERASIROX
     Indication: HAEMOCHROMATOSIS
     Dosage: 500 MG, QD
     Route: 065

REACTIONS (1)
  - Pneumonia [Recovered/Resolved]
